FAERS Safety Report 8862758 (Version 1)
Quarter: 2012Q4

REPORT INFORMATION
  Report Type: 
  Country: US (occurrence: US)
  Receive Date: 20121026
  Receipt Date: 20121026
  Transmission Date: 20130627
  Serious: No
  Sender: FDA-Public Use
  Company Number: US-ALLERGAN-1208463US

PATIENT
  Sex: Female

DRUGS (5)
  1. ALPHAGAN P [Suspect]
     Indication: DRUG USE FOR UNKNOWN INDICATION
     Dosage: 1 Gtt, q12h
     Route: 047
  2. SYNTHROID [Concomitant]
     Indication: HYPOTHYROIDISM
  3. GLUCOPHAGE                         /00082701/ [Concomitant]
     Indication: DIABETES
  4. ESTRATEST [Concomitant]
     Indication: HRT
  5. HYDROCHLOROTHIAZIDE [Concomitant]
     Indication: DIURETIC THERAPY

REACTIONS (2)
  - Eye irritation [Unknown]
  - Ocular hyperaemia [Unknown]
